FAERS Safety Report 9134018 (Version 2)
Quarter: 2013Q2

REPORT INFORMATION
  Report Type: Spontaneous
  Country: US (occurrence: US)
  Receive Date: 20130304
  Receipt Date: 20130428
  Transmission Date: 20140414
  Serious: No
  Sender: FDA-Public Use
  Company Number: US-009507513-1302USA010136

PATIENT
  Age: 20 Year
  Sex: Female
  Weight: 73.47 kg

DRUGS (3)
  1. NEXPLANON [Suspect]
     Indication: CONTRACEPTION
     Dosage: STANDARD PACKAGE OF PF APPLI OF 1
     Route: 059
     Dates: start: 20130116, end: 20130225
  2. NEXPLANON [Suspect]
     Dosage: UNK
     Route: 059
     Dates: start: 20130225
  3. PROVENTIL [Concomitant]

REACTIONS (3)
  - Device breakage [Recovered/Resolved]
  - Device kink [Recovered/Resolved]
  - No adverse event [Unknown]
